FAERS Safety Report 11690060 (Version 1)
Quarter: 2015Q4

REPORT INFORMATION
  Report Type: Spontaneous
  Country: US (occurrence: None)
  Receive Date: 20151030
  Receipt Date: 20151030
  Transmission Date: 20160304
  Serious: No
  Sender: FDA-Public Use
  Company Number: None

PATIENT
  Age: 51 Year
  Sex: Female
  Weight: 64.86 kg

DRUGS (14)
  1. ESTROGEN [Concomitant]
     Active Substance: ESTRONE\SUS SCROFA OVARY
  2. FLONASE [Concomitant]
     Active Substance: FLUTICASONE PROPIONATE
  3. ENBREL [Suspect]
     Active Substance: ETANERCEPT
     Indication: RHEUMATOID ARTHRITIS
     Dosage: 1 INJECTION WEEKLY  ONCE A WEEK GIVEN INTO/UNDER THE SKIN
     Route: 058
     Dates: start: 20131101
  4. IBUPROFEN. [Concomitant]
     Active Substance: IBUPROFEN
  5. MSM [Concomitant]
     Active Substance: DIMETHYL SULFONE
  6. FISH OIL [Concomitant]
     Active Substance: FISH OIL
  7. VITAMIN E [Concomitant]
     Active Substance: .ALPHA.-TOCOPHEROL
  8. ASTAXANTHIN [Concomitant]
  9. MOTRIN [Concomitant]
     Active Substance: IBUPROFEN
  10. VITAMIN D [Concomitant]
     Active Substance: CHOLECALCIFEROL
  11. MULTI VITAMIN [Concomitant]
     Active Substance: VITAMINS
  12. VITAMIN C [Concomitant]
     Active Substance: ASCORBIC ACID
  13. TEA [Concomitant]
     Active Substance: TEA LEAF
  14. CALCIUM [Concomitant]
     Active Substance: CALCIUM

REACTIONS (1)
  - Papilloedema [None]

NARRATIVE: CASE EVENT DATE: 20151022
